FAERS Safety Report 7220955-X (Version None)
Quarter: 2010Q4

REPORT INFORMATION
  Report Type: 
  Country: None (occurrence: None)
  Receive Date: 20101227
  Receipt Date: 20101208
  Transmission Date: 20110411
  Serious: Yes (Hospitalization)
  Sender: FDA-Public Use
  Company Number: 2010SA052529

PATIENT
  Age: 83 Year
  Sex: Female
  Weight: 66 kg

DRUGS (11)
  1. MULTAQ [Suspect]
     Indication: ATRIAL FIBRILLATION
     Dosage: 400 MILLIGRAM(S); TWICE A DAY; ORAL
     Route: 048
     Dates: start: 20100820
  2. MULTAQ [Suspect]
  3. CLONAZEPAM [Suspect]
     Indication: SLEEP DISORDER
  4. KLONOPIN [Concomitant]
  5. SOTALOL [Concomitant]
  6. COUMADIN [Concomitant]
  7. CALCIUM WITH VITAMIN D [Concomitant]
  8. VITAMIN D [Concomitant]
  9. VALTREX [Concomitant]
  10. MAGNESIUM [Concomitant]
  11. ZOLOFT [Concomitant]

REACTIONS (7)
  - ACTIVITIES OF DAILY LIVING IMPAIRED [None]
  - ANXIETY [None]
  - DIARRHOEA [None]
  - DRUG INTERACTION [None]
  - INSOMNIA [None]
  - NERVOUSNESS [None]
  - TREMOR [None]
